FAERS Safety Report 4888061-7 (Version None)
Quarter: 2006Q1

REPORT INFORMATION
  Report Type: 
  Country: None (occurrence: None)
  Receive Date: 20060123
  Receipt Date: 20051213
  Transmission Date: 20060701
  Serious: Yes (Death, Hospitalization)
  Sender: FDA-Public Use
  Company Number: US-MERCK-0512USA02084

PATIENT
  Age: 75 Year
  Sex: Female
  Weight: 67 kg

DRUGS (8)
  1. VIOXX [Suspect]
     Route: 048
  2. BAYCOL [Concomitant]
     Route: 065
  3. LIPITOR [Concomitant]
     Route: 065
  4. LESCOL [Concomitant]
     Route: 065
  5. PRAVACHOL [Concomitant]
     Route: 065
  6. METHOTREXATE [Concomitant]
     Route: 065
  7. FOLIC ACID [Concomitant]
     Route: 065
  8. PREDNISONE [Concomitant]
     Route: 065

REACTIONS (4)
  - ASPIRATION [None]
  - CARDIAC DISORDER [None]
  - PNEUMONITIS [None]
  - RESPIRATORY FAILURE [None]
